FAERS Safety Report 23671417 (Version 1)
Quarter: 2024Q1

REPORT INFORMATION
  Report Type: Spontaneous
  Country: US (occurrence: US)
  Receive Date: 20240326
  Receipt Date: 20240326
  Transmission Date: 20240410
  Serious: Yes (Other)
  Sender: FDA-Public Use
  Company Number: US-GTI-000188

PATIENT
  Age: 67 Year
  Sex: Male

DRUGS (6)
  1. PREDNISONE [Suspect]
     Active Substance: PREDNISONE
     Indication: Interstitial lung disease
     Route: 065
  2. PREDNISONE [Suspect]
     Active Substance: PREDNISONE
     Indication: Crohn^s disease
     Route: 065
  3. PREDNISONE [Suspect]
     Active Substance: PREDNISONE
     Indication: Interstitial lung disease
     Route: 065
  4. PREDNISONE [Suspect]
     Active Substance: PREDNISONE
     Indication: Crohn^s disease
     Route: 065
  5. IMURAN [Suspect]
     Active Substance: AZATHIOPRINE
     Indication: Crohn^s disease
     Route: 065
  6. IMURAN [Suspect]
     Active Substance: AZATHIOPRINE
     Indication: Interstitial lung disease
     Route: 065

REACTIONS (11)
  - Pulmonary artery thrombosis [Unknown]
  - Pulmonary venous thrombosis [Unknown]
  - Pulmonary embolism [Unknown]
  - Respiratory failure [Unknown]
  - Condition aggravated [Unknown]
  - Pulmonary mass [Unknown]
  - Emphysema [Unknown]
  - Pleural effusion [Unknown]
  - Disease progression [Unknown]
  - Hypoxia [Unknown]
  - Therapy non-responder [Unknown]
